FAERS Safety Report 10061444 (Version 2)
Quarter: 2014Q2

REPORT INFORMATION
  Report Type: Report from Study
  Country: EG (occurrence: EG)
  Receive Date: 20140407
  Receipt Date: 20140523
  Transmission Date: 20141212
  Serious: Yes (Other)
  Sender: FDA-Public Use
  Company Number: EG-ROCHE-1372609

PATIENT
  Sex: 0

DRUGS (2)
  1. PEG-INTERFERON ALFA 2A [Suspect]
     Indication: CHRONIC HEPATITIS C
     Route: 065
  2. RIBAVIRIN [Suspect]
     Indication: CHRONIC HEPATITIS C
     Route: 065

REACTIONS (6)
  - Left ventricular dysfunction [Unknown]
  - Left ventricular dysfunction [Unknown]
  - Pericardial effusion [Unknown]
  - Myocardial ischaemia [Unknown]
  - Cardiac failure [Unknown]
  - Arrhythmia [Unknown]
